FAERS Safety Report 9619658 (Version 2)
Quarter: 2014Q1

REPORT INFORMATION
  Report Type: Report from Study
  Country: NL (occurrence: NL)
  Receive Date: 20131014
  Receipt Date: 20140103
  Transmission Date: 20141002
  Serious: Yes (Death)
  Sender: FDA-Public Use
  Company Number: PHHY2013NL114975

PATIENT
  Age: 81 Year
  Sex: Female

DRUGS (9)
  1. ACLASTA [Suspect]
     Indication: OSTEOPOROSIS
     Dosage: 5 MG, PER YEAR
     Route: 042
     Dates: start: 20101101
  2. ACLASTA [Suspect]
     Dosage: 5 MG, PER YEAR
     Route: 042
     Dates: start: 20111022
  3. ACLASTA [Suspect]
     Dosage: 5 MG, PER YEAR
     Route: 042
     Dates: start: 20121015
  4. ASCAL [Concomitant]
     Dosage: UNK UKN, UNK
  5. THYRAX [Concomitant]
     Dosage: UNK UKN, UNK
  6. OMEPRAZOLE [Concomitant]
     Dosage: UNK UKN, UNK
  7. INEGY [Concomitant]
     Dosage: UNK UKN, UNK
  8. RANITIDINE [Concomitant]
     Dosage: UNK UKN, UNK
  9. TIOTROPIUM [Concomitant]
     Dosage: UNK UKN, UNK

REACTIONS (1)
  - Aneurysm ruptured [Fatal]
